FAERS Safety Report 5057425-3 (Version None)
Quarter: 2006Q3

REPORT INFORMATION
  Report Type: 
  Country: None (occurrence: None)
  Receive Date: 20060721
  Receipt Date: 20050929
  Transmission Date: 20061208
  Serious: No
  Sender: FDA-Public Use
  Company Number: US-GLAXOSMITHKLINE-A0576373A

PATIENT
  Age: 75 Year
  Sex: Female

DRUGS (4)
  1. AVANDIA [Suspect]
     Route: 048
     Dates: start: 20050505
  2. LIPITOR [Concomitant]
  3. NOVOLOG [Concomitant]
  4. DIOVAN [Concomitant]

REACTIONS (2)
  - ABDOMINAL DISTENSION [None]
  - WEIGHT INCREASED [None]
